FAERS Safety Report 18145973 (Version 1)
Quarter: 2020Q3

REPORT INFORMATION
  Report Type: Report from Study
  Country: US (occurrence: US)
  Receive Date: 20200813
  Receipt Date: 20200813
  Transmission Date: 20201103
  Serious: Yes (Hospitalization)
  Sender: FDA-Public Use
  Company Number: US-EISAI MEDICAL RESEARCH-EC-2020-077699

PATIENT
  Age: 59 Year
  Sex: Male
  Weight: 59 kg

DRUGS (19)
  1. CLONAZEPAM. [Concomitant]
     Active Substance: CLONAZEPAM
  2. DULOXETINE. [Concomitant]
     Active Substance: DULOXETINE
  3. LENVIMA [Suspect]
     Active Substance: LENVATINIB
     Indication: RENAL CANCER
     Dosage: 21 DAYS ON, 7 DAYS OFF
     Route: 048
     Dates: start: 20200709, end: 202007
  4. TYLENOL [Concomitant]
     Active Substance: ACETAMINOPHEN
  5. MELOXICAM. [Concomitant]
     Active Substance: MELOXICAM
  6. OM?MOUTHWASH [Concomitant]
  7. OXYCODONE [Concomitant]
     Active Substance: OXYCODONE
  8. TIZANIDINE. [Concomitant]
     Active Substance: TIZANIDINE
  9. DRONABINOL. [Concomitant]
     Active Substance: DRONABINOL
  10. PREDNISONE. [Concomitant]
     Active Substance: PREDNISONE
  11. AFINITOR [Concomitant]
     Active Substance: EVEROLIMUS
  12. ARIPIPRAZOLE. [Concomitant]
     Active Substance: ARIPIPRAZOLE
  13. GABAPENTIN. [Concomitant]
     Active Substance: GABAPENTIN
  14. LEVOTHYROXINE. [Concomitant]
     Active Substance: LEVOTHYROXINE
  15. PAROXETINE. [Concomitant]
     Active Substance: PAROXETINE
  16. TEMAZEPAM. [Concomitant]
     Active Substance: TEMAZEPAM
  17. LENVIMA [Suspect]
     Active Substance: LENVATINIB
     Dosage: 21 DAYS ON, 7 DAYS OFF
     Route: 048
     Dates: start: 202007, end: 202008
  18. MONTELUKAST [Concomitant]
     Active Substance: MONTELUKAST SODIUM
  19. MORPHINE [Concomitant]
     Active Substance: MORPHINE

REACTIONS (13)
  - Blood calcium increased [Unknown]
  - Blood magnesium increased [Unknown]
  - Pain [Not Recovered/Not Resolved]
  - Dehydration [Unknown]
  - Dysphagia [Unknown]
  - Stomatitis [Not Recovered/Not Resolved]
  - White blood cell count increased [Unknown]
  - Blood potassium abnormal [Unknown]
  - Anosmia [Not Recovered/Not Resolved]
  - Decreased appetite [Unknown]
  - Weight decreased [Unknown]
  - Pain [Not Recovered/Not Resolved]
  - Blood pressure increased [Unknown]

NARRATIVE: CASE EVENT DATE: 202007
